FAERS Safety Report 7065093-4 (Version None)
Quarter: 2010Q4

REPORT INFORMATION
  Report Type: 
  Country: None (occurrence: None)
  Receive Date: 20101027
  Receipt Date: 19911001
  Transmission Date: 20110411
  Serious: Yes (Death, Other)
  Sender: FDA-Public Use
  Company Number: US-ROCHE-910201413001

PATIENT
  Age: 75 Year
  Sex: Male
  Weight: 70 kg

DRUGS (4)
  1. VALIUM MM FOR INJECTION [Suspect]
     Indication: RESPIRATORY FAILURE
     Route: 042
     Dates: start: 19910924, end: 19910929
  2. VALIUM MM FOR INJECTION [Suspect]
     Route: 042
     Dates: start: 19910917, end: 19910923
  3. XANAX [Concomitant]
     Route: 065
  4. HALCION [Concomitant]
     Route: 065

REACTIONS (3)
  - COMA [None]
  - DEATH [None]
  - OVERDOSE [None]
